FAERS Safety Report 5760638-6 (Version None)
Quarter: 2008Q2

REPORT INFORMATION
  Report Type: 
  Country: None (occurrence: None)
  Receive Date: 20080602
  Receipt Date: 20080520
  Transmission Date: 20081010
  Serious: Yes (Hospitalization)
  Sender: FDA-Public Use
  Company Number: 234738J08USA

PATIENT
  Age: 47 Year
  Sex: Female

DRUGS (3)
  1. REBIF [Suspect]
     Indication: MULTIPLE SCLEROSIS
     Dosage: 44 MCG, 3 IN 1 WEEKS, SUBCUTANEOUS; 44 MCG, 2 IN 1 WEEKS, SUBCUTANEOUS; 44 MCG
     Route: 058
     Dates: start: 20071218, end: 20080301
  2. REBIF [Suspect]
     Indication: MULTIPLE SCLEROSIS
     Dosage: 44 MCG, 3 IN 1 WEEKS, SUBCUTANEOUS; 44 MCG, 2 IN 1 WEEKS, SUBCUTANEOUS; 44 MCG
     Route: 058
     Dates: start: 20080301, end: 20080501
  3. REBIF [Suspect]
     Indication: MULTIPLE SCLEROSIS
     Dosage: 44 MCG, 3 IN 1 WEEKS, SUBCUTANEOUS; 44 MCG, 2 IN 1 WEEKS, SUBCUTANEOUS; 44 MCG
     Route: 058
     Dates: start: 20080519

REACTIONS (5)
  - BLOOD DISORDER [None]
  - CONVULSION [None]
  - FALL [None]
  - VIRAL INFECTION [None]
  - WHITE BLOOD CELL COUNT DECREASED [None]
